FAERS Safety Report 9996332 (Version 1)
Quarter: 2014Q1

REPORT INFORMATION
  Report Type: Spontaneous
  Country: BR (occurrence: BR)
  Receive Date: 20140311
  Receipt Date: 20140311
  Transmission Date: 20141002
  Serious: Yes (Other)
  Sender: FDA-Public Use
  Company Number: BR-PFIZER INC-2014069402

PATIENT
  Age: 51 Year
  Sex: Male
  Weight: 88 kg

DRUGS (3)
  1. EFEXOR XR [Suspect]
     Indication: DEPRESSION
     Dosage: 37.5 MG, UNK
     Route: 048
     Dates: start: 20140207, end: 20140227
  2. EFEXOR XR [Suspect]
     Dosage: 75 MG (ONE CAPSULE), DAILY
     Route: 048
     Dates: start: 20140228, end: 2014
  3. QUEROPAX [Concomitant]
     Indication: DEPRESSION

REACTIONS (4)
  - Shock [Unknown]
  - Mental impairment [Unknown]
  - Amnesia [Unknown]
  - Sluggishness [Unknown]
